FAERS Safety Report 8458042-5 (Version None)
Quarter: 2012Q2

REPORT INFORMATION
  Report Type: 
  Country: None (occurrence: None)
  Receive Date: 20120615
  Receipt Date: 20120611
  Transmission Date: 20120825
  Serious: Yes (Hospitalization)
  Sender: FDA-Public Use
  Company Number: AUR-APL-2012-02592

PATIENT
  Age: 47 Year
  Sex: Male
  Weight: 92 kg

DRUGS (13)
  1. ASPIRIN [Concomitant]
  2. CLOPIDEGREL [Concomitant]
  3. AMLODIPINE [Concomitant]
     Indication: PRODUCT USED FOR UNKNOWN INDICATION
  4. RAMIPRIL [Concomitant]
  5. DILTIAZEM [Suspect]
     Indication: PRODUCT USED FOR UNKNOWN INDICATION
  6. RANITIDINE HYDROCHLORIDE [Concomitant]
  7. BISOPROLOL FUMARATE [Suspect]
     Indication: PRODUCT USED FOR UNKNOWN INDICATION
     Dosage: (5 MG)
     Dates: end: 20110616
  8. ROSUVASTATIN [Concomitant]
  9. TRYPSIN [Suspect]
     Indication: ACUTE CORONARY SYNDROME
     Dosage: 10IN 1D, ORAL
     Route: 048
     Dates: start: 20090112
  10. EZETIMIBE [Concomitant]
  11. NITROGLYCERIN [Concomitant]
  12. NICORANDIL (NICORANDIL) [Concomitant]
  13. ISOSORBIDE MONONITRATE [Concomitant]

REACTIONS (7)
  - PROCEDURAL DIZZINESS [None]
  - ANGINA PECTORIS [None]
  - PAIN IN EXTREMITY [None]
  - MALAISE [None]
  - FLANK PAIN [None]
  - NASOPHARYNGITIS [None]
  - NECK PAIN [None]
